FAERS Safety Report 9314231 (Version 1)
Quarter: 2013Q2

REPORT INFORMATION
  Report Type: Spontaneous
  Country: DK (occurrence: None)
  Receive Date: 20130522
  Receipt Date: 20130522
  Transmission Date: 20140414
  Serious: Yes (Other)
  Sender: FDA-Public Use
  Company Number: FK201301571

PATIENT
  Sex: Female

DRUGS (7)
  1. PACLITAXEL [Suspect]
     Dates: start: 201301
  2. DOCETAXEL [Suspect]
  3. VINORELBINE [Suspect]
  4. TAMOXIFEN [Suspect]
  5. LAPATINIB [Suspect]
     Dosage: 1 IN 1 WK, UNKNOWN
     Dates: start: 201301
  6. HERCEPTIN [Suspect]
  7. XELODA [Suspect]

REACTIONS (3)
  - Disease progression [None]
  - Neutropenia [None]
  - Metastases to skin [None]
